FAERS Safety Report 15553597 (Version 1)
Quarter: 2018Q4

REPORT INFORMATION
  Report Type: Spontaneous
  Country: FR (occurrence: FR)
  Receive Date: 20181026
  Receipt Date: 20181026
  Transmission Date: 20190205
  Serious: Yes (Other)
  Sender: FDA-Public Use
  Company Number: FR-ROCHE-2201196

PATIENT
  Age: 41 Year
  Sex: Female

DRUGS (2)
  1. LUCENTIS [Suspect]
     Active Substance: RANIBIZUMAB
     Route: 065
     Dates: start: 20170227, end: 20170227
  2. LUCENTIS [Suspect]
     Active Substance: RANIBIZUMAB
     Indication: CHOROIDITIS
     Route: 065
     Dates: start: 2013

REACTIONS (2)
  - Eye haemorrhage [Unknown]
  - Maternal exposure during pregnancy [Unknown]
